FAERS Safety Report 10701063 (Version 3)
Quarter: 2015Q4

REPORT INFORMATION
  Report Type: Report from Study
  Country: KR (occurrence: KR)
  Receive Date: 20150109
  Receipt Date: 20151109
  Transmission Date: 20160304
  Serious: No
  Sender: FDA-Public Use
  Company Number: PHHY2015KR001607

PATIENT
  Age: 66 Year
  Sex: Male

DRUGS (11)
  1. LIPO-A [Concomitant]
     Indication: DIABETES MELLITUS
     Dosage: 400 MG, UNK
     Route: 048
     Dates: start: 20120319
  2. B COM-T [Concomitant]
     Indication: VITAMIN SUPPLEMENTATION
     Dosage: 1 DF, UNK
     Route: 048
     Dates: start: 20110924
  3. TACROBELL [Concomitant]
     Active Substance: TACROLIMUS
     Indication: IMMUNOSUPPRESSANT DRUG THERAPY
     Dosage: 1.5 MG, UNK
     Route: 048
     Dates: start: 20110926
  4. ASPIRIN. [Concomitant]
     Active Substance: ASPIRIN
     Indication: INTRACRANIAL ANEURYSM
     Dosage: 100 MG, UNK
     Route: 048
     Dates: start: 20140728
  5. ASPIRIN. [Concomitant]
     Active Substance: ASPIRIN
     Indication: PLAGUE
  6. TASIGNA [Suspect]
     Active Substance: NILOTINIB
     Indication: CHRONIC MYELOID LEUKAEMIA
     Dosage: 600 MG, QD
     Route: 048
     Dates: start: 20140818, end: 20141026
  7. TASIGNA [Suspect]
     Active Substance: NILOTINIB
     Dosage: 400 MG, QD
     Route: 048
     Dates: start: 20141027
  8. ULCERLMIN [Concomitant]
     Active Substance: SUCRALFATE
     Indication: HEPATIC CIRRHOSIS
     Dosage: UNK
     Route: 048
     Dates: start: 20110727
  9. JANUVIA [Concomitant]
     Active Substance: SITAGLIPTIN PHOSPHATE
     Indication: DIABETES MELLITUS
     Dosage: 100 MG, UNK
     Route: 048
     Dates: start: 20130722
  10. MYCONOL [Concomitant]
     Indication: IMMUNOSUPPRESSANT DRUG THERAPY
     Dosage: 250 MG, UNK
     Route: 048
     Dates: start: 20120319
  11. DIABEX S.R. [Concomitant]
     Active Substance: METFORMIN HYDROCHLORIDE
     Indication: DIABETES MELLITUS
     Dosage: 500 MG, UNK
     Route: 048
     Dates: start: 20130722

REACTIONS (1)
  - Abdominal pain [Not Recovered/Not Resolved]

NARRATIVE: CASE EVENT DATE: 20141027
